FAERS Safety Report 23193838 (Version 1)
Quarter: 2023Q4

REPORT INFORMATION
  Report Type: Spontaneous
  Country: US (occurrence: US)
  Receive Date: 20231116
  Receipt Date: 20231116
  Transmission Date: 20240110
  Serious: Yes (Hospitalization, Other)
  Sender: FDA-Public Use
  Company Number: US-ELI_LILLY_AND_COMPANY-US202311006788

PATIENT
  Age: 22 Month
  Sex: Male

DRUGS (4)
  1. INSULIN LISPRO [Suspect]
     Active Substance: INSULIN LISPRO
     Indication: Type 1 diabetes mellitus
     Dosage: UNK, UNKNOWN
     Route: 065
  2. INSULIN LISPRO [Suspect]
     Active Substance: INSULIN LISPRO
     Dosage: UNK
     Route: 058
  3. INSULIN HUMAN [Suspect]
     Active Substance: INSULIN HUMAN
     Indication: Type 1 diabetes mellitus
     Dosage: UNK, UNKNOWN
     Route: 041
  4. INSULIN GLARGINE [Suspect]
     Active Substance: INSULIN GLARGINE
     Indication: Type 1 diabetes mellitus
     Dosage: UNK, UNKNOWN
     Route: 058

REACTIONS (5)
  - Diabetic ketoacidosis [Unknown]
  - Anaphylactic reaction [Recovered/Resolved]
  - Hypersensitivity [Unknown]
  - Injection site erythema [Unknown]
  - Off label use [Unknown]
